FAERS Safety Report 10812383 (Version 1)
Quarter: 2015Q1

REPORT INFORMATION
  Report Type: Spontaneous
  Country: US (occurrence: US)
  Receive Date: 20150218
  Receipt Date: 20150218
  Transmission Date: 20150721
  Serious: No
  Sender: FDA-Public Use
  Company Number: US-TEVA-534837USA

PATIENT
  Sex: Female

DRUGS (1)
  1. PROGESTERONE. [Suspect]
     Active Substance: PROGESTERONE
     Indication: HORMONE REPLACEMENT THERAPY
     Dates: start: 20150109

REACTIONS (4)
  - Drug ineffective [Unknown]
  - Insomnia [Unknown]
  - Somnolence [Unknown]
  - Hot flush [Unknown]

NARRATIVE: CASE EVENT DATE: 20150109
